FAERS Safety Report 11888570 (Version 1)
Quarter: 2016Q1

REPORT INFORMATION
  Report Type: Spontaneous
  Country: US (occurrence: None)
  Receive Date: 20160104
  Receipt Date: 20160104
  Transmission Date: 20160526
  Serious: No
  Sender: FDA-Public Use
  Company Number: None

PATIENT
  Age: 18 Year
  Sex: Male
  Weight: 61.24 kg

DRUGS (1)
  1. ACETAMINOPHEN 500MG [Suspect]
     Active Substance: ACETAMINOPHEN
     Indication: MYALGIA
     Route: 048
     Dates: start: 20160102, end: 20160103

REACTIONS (1)
  - Ocular hyperaemia [None]

NARRATIVE: CASE EVENT DATE: 20160103
